FAERS Safety Report 9026968 (Version 1)
Quarter: 2013Q1

REPORT INFORMATION
  Report Type: Spontaneous
  Country: FR (occurrence: FR)
  Receive Date: 20130123
  Receipt Date: 20130123
  Transmission Date: 20140127
  Serious: Yes (Hospitalization, Other)
  Sender: FDA-Public Use
  Company Number: FR-PFIZER INC-2013014024

PATIENT
  Age: 90 Year
  Sex: Female

DRUGS (8)
  1. LYRICA [Suspect]
     Indication: TRIGEMINAL NEURALGIA
     Dosage: 400 MG, 2X/DAY
     Route: 048
     Dates: start: 2011, end: 20121113
  2. LYRICA [Interacting]
     Dosage: REDUCED DOSES
     Route: 048
     Dates: start: 20121114
  3. CIFLOX [Interacting]
     Indication: PYELONEPHRITIS ACUTE
     Dosage: 500 MG, 2X/DAY
     Route: 048
     Dates: start: 20121110, end: 20121113
  4. CARBAMAZEPINE [Interacting]
     Indication: TRIGEMINAL NEURALGIA
     Dosage: 600 MG, 2X/DAY
     Route: 048
     Dates: start: 1998, end: 20121113
  5. CARBAMAZEPINE [Interacting]
     Dosage: REDUCED DOSES
     Route: 048
     Dates: start: 20121114
  6. KARDEGIC [Concomitant]
     Indication: ISCHAEMIC STROKE
     Dosage: 160 MG, 1X/DAY
     Route: 048
     Dates: start: 201009
  7. FUROSEMIDE [Concomitant]
     Indication: HYPERTENSION
     Dosage: 10 MG, 1X/DAY
     Route: 048
     Dates: start: 2012
  8. TRAMADOL [Concomitant]
     Indication: TRIGEMINAL NEURALGIA
     Dosage: 100 MG, 3X/DAY
     Route: 048
     Dates: start: 2011, end: 20121113

REACTIONS (13)
  - Drug interaction [Recovered/Resolved]
  - Dyskinesia [Recovered/Resolved]
  - Tremor [Recovered/Resolved]
  - Clonus [Recovered/Resolved]
  - Pyelonephritis acute [Unknown]
  - Liver function test abnormal [Unknown]
  - Pancreatitis acute [Unknown]
  - Subcutaneous haematoma [Unknown]
  - Somnolence [Unknown]
  - Dyspnoea [Unknown]
  - Hypernatraemia [Unknown]
  - Protein total decreased [Unknown]
  - Thrombocytopenia [Unknown]
